FAERS Safety Report 6746509-7 (Version None)
Quarter: 2010Q2

REPORT INFORMATION
  Report Type: 
  Country: None (occurrence: None)
  Receive Date: 20100528
  Receipt Date: 20100324
  Transmission Date: 20101027
  Serious: No
  Sender: FDA-Public Use
  Company Number: US-ASTRAZENECA-2010SE14125

PATIENT
  Age: 50 Year
  Sex: Female

DRUGS (1)
  1. PRILOSEC OTC [Suspect]
     Route: 048
     Dates: start: 20100307, end: 20100320

REACTIONS (2)
  - ANXIETY [None]
  - DYSGEUSIA [None]
